FAERS Safety Report 7322532-9 (Version None)
Quarter: 2011Q1

REPORT INFORMATION
  Report Type: 
  Country: None (occurrence: None)
  Receive Date: 20110215
  Receipt Date: 20110203
  Transmission Date: 20110831
  Serious: Yes (Hospitalization)
  Sender: FDA-Public Use
  Company Number: 022544

PATIENT

DRUGS (1)
  1. KEPPRA [Suspect]

REACTIONS (1)
  - DYSPHAGIA [None]
